FAERS Safety Report 16172502 (Version 1)
Quarter: 2019Q2

REPORT INFORMATION
  Report Type: Spontaneous
  Country: US (occurrence: US)
  Receive Date: 20190409
  Receipt Date: 20190409
  Transmission Date: 20190711
  Serious: Yes (Hospitalization, Other)
  Sender: FDA-Public Use
  Company Number: US-CURIUM-201900115

PATIENT
  Age: 18 Year
  Sex: Male

DRUGS (1)
  1. SODIUM IODIDE I 131 [Suspect]
     Active Substance: SODIUM IODIDE I-131
     Indication: BASEDOW^S DISEASE
     Route: 065

REACTIONS (3)
  - Upper respiratory tract infection [Unknown]
  - Hyperthyroidism [Unknown]
  - Suicidal ideation [Recovered/Resolved]
